FAERS Safety Report 10479170 (Version 1)
Quarter: 2014Q3

REPORT INFORMATION
  Report Type: Spontaneous
  Country: FR (occurrence: FR)
  Receive Date: 20140926
  Receipt Date: 20140926
  Transmission Date: 20150326
  Serious: Yes (Hospitalization)
  Sender: FDA-Public Use
  Company Number: FR-ABBVIE-14K-056-1287692-00

PATIENT
  Age: 27 Year
  Sex: Male

DRUGS (3)
  1. HUMIRA [Suspect]
     Active Substance: ADALIMUMAB
     Indication: CROHN^S DISEASE
     Route: 058
     Dates: start: 20140623, end: 20140828
  2. CORTICOTHERAPY [Concomitant]
     Indication: PRODUCT USED FOR UNKNOWN INDICATION
  3. ANTI-TNF MEDICATION [Concomitant]
     Indication: PRODUCT USED FOR UNKNOWN INDICATION

REACTIONS (3)
  - Proteinuria [Recovered/Resolved with Sequelae]
  - Rectal haemorrhage [Recovered/Resolved with Sequelae]
  - Henoch-Schonlein purpura [Not Recovered/Not Resolved]

NARRATIVE: CASE EVENT DATE: 20140828
